FAERS Safety Report 9055210 (Version 5)
Quarter: 2013Q3

REPORT INFORMATION
  Report Type: Spontaneous
  Country: US (occurrence: US)
  Receive Date: 20130206
  Receipt Date: 20130719
  Transmission Date: 20140515
  Serious: Yes (Hospitalization, Other)
  Sender: FDA-Public Use
  Company Number: US-009507513-1302USA000341

PATIENT
  Sex: Female
  Weight: 68.27 kg

DRUGS (15)
  1. FOSAMAX [Suspect]
     Indication: OSTEOPOROSIS
     Dosage: 5 MG, QD
     Route: 048
     Dates: start: 19991129
  2. FOSAMAX [Suspect]
     Indication: OSTEOPENIA
     Dosage: 35 MG, UNK
     Route: 048
  3. FOSAMAX [Suspect]
     Dosage: 70 MG, UNK
     Route: 048
     Dates: end: 200011
  4. FOSAMAX [Suspect]
     Dosage: 70 MG, UNK
     Route: 048
     Dates: start: 20031210, end: 20080204
  5. ALENDRONATE SODIUM [Suspect]
     Indication: OSTEOPOROSIS
     Dosage: 70 MG, QW
     Route: 048
  6. VITAMINS (UNSPECIFIED) [Concomitant]
     Dosage: UNK
     Dates: start: 1993
  7. CALCIUM (UNSPECIFIED) [Concomitant]
     Dosage: 1000 - 2000 MG QD
     Route: 048
     Dates: start: 1993
  8. VITAMIN B (UNSPECIFIED) [Concomitant]
     Dosage: UNK
     Dates: start: 1993
  9. VITAMIN D (UNSPECIFIED) [Concomitant]
     Dosage: 400 IU, UNK
     Route: 048
     Dates: start: 1993
  10. OMEGA-3 MARINE TRIGLYCERIDES [Concomitant]
     Dosage: UNK
     Dates: start: 1993
  11. PREMARIN [Concomitant]
     Indication: POSTMENOPAUSE
     Dosage: 0.625 MG, QD
     Route: 048
  12. HYDROCHLOROTHIAZIDE (+) TRIAMTERENE [Concomitant]
     Indication: HYPERTENSION
     Dosage: 37.5/25 DF, UNK
  13. NORVASC [Concomitant]
     Indication: HYPERTENSION
     Dosage: 10 MG, UNK
  14. ATACAND [Concomitant]
     Dosage: 16 MG, UNK
  15. LIPTOR [Concomitant]
     Indication: HYPERCHOLESTEROLAEMIA
     Dosage: 10 MG, QD

REACTIONS (36)
  - Intramedullary rod insertion [Unknown]
  - Femur fracture [Unknown]
  - Femur fracture [Unknown]
  - Low turnover osteopathy [Unknown]
  - Adverse event [Unknown]
  - Tooth extraction [Unknown]
  - Calcium deficiency [Unknown]
  - Fibrocystic breast disease [Unknown]
  - Scar [Unknown]
  - Rectocele [Unknown]
  - Cystocele [Unknown]
  - Vaginal prolapse [Unknown]
  - Drug intolerance [Unknown]
  - Arthritis [Unknown]
  - Spinal osteoarthritis [Unknown]
  - Scoliosis [Unknown]
  - Fall [Unknown]
  - Ankle operation [Unknown]
  - Chapped lips [Unknown]
  - Lip dry [Unknown]
  - Sinus disorder [Unknown]
  - Monarthritis [Unknown]
  - Bone marrow oedema [Unknown]
  - Arthritis [Unknown]
  - Fibula fracture [Unknown]
  - Tendon injury [Unknown]
  - Tendon disorder [Unknown]
  - Exostosis [Unknown]
  - Foot deformity [Unknown]
  - Pain in extremity [Unknown]
  - Back pain [Unknown]
  - Pruritus [Unknown]
  - Muscle spasms [Unknown]
  - Rash [Unknown]
  - Headache [Unknown]
  - Gastrooesophageal reflux disease [Unknown]
